FAERS Safety Report 4534691-1 (Version None)
Quarter: 2004Q4

REPORT INFORMATION
  Report Type: 
  Country: None (occurrence: None)
  Receive Date: 20041222
  Receipt Date: 20031027
  Transmission Date: 20050328
  Serious: Yes (Hospitalization)
  Sender: FDA-Public Use
  Company Number: US-BRISTOL-MYERS SQUIBB COMPANY-12419628

PATIENT
  Age: 88 Year
  Sex: Female
  Weight: 55 kg

DRUGS (4)
  1. PRAVACHOL [Suspect]
     Indication: STENT PLACEMENT
     Route: 048
     Dates: start: 20030924, end: 20031031
  2. PLAVIX [Concomitant]
     Dates: start: 20030916
  3. ASPIRIN [Concomitant]
     Dates: start: 20030916
  4. SYNTHROID [Concomitant]

REACTIONS (3)
  - DIZZINESS [None]
  - GROIN PAIN [None]
  - PAIN IN EXTREMITY [None]
